FAERS Safety Report 9182519 (Version 1)
Quarter: 2013Q1

REPORT INFORMATION
  Report Type: Spontaneous
  Country: US (occurrence: US)
  Receive Date: 20130322
  Receipt Date: 20130322
  Transmission Date: 20140127
  Serious: Yes (Other)
  Sender: FDA-Public Use
  Company Number: US-BRISTOL-MYERS SQUIBB COMPANY-16794208

PATIENT
  Age: 57 Year
  Sex: Male
  Weight: 102.04 kg

DRUGS (3)
  1. ERBITUX [Suspect]
     Indication: COLON CANCER
     Dosage: STARTED 3 MONTHS AGO
     Dates: start: 2012
  2. 5-FLUOROURACIL [Concomitant]
  3. IRINOTECAN [Concomitant]

REACTIONS (2)
  - Metastases to liver [Unknown]
  - Hyperbilirubinaemia [Unknown]
